FAERS Safety Report 9878549 (Version 2)
Quarter: 2014Q1

REPORT INFORMATION
  Report Type: Spontaneous
  Country: None (occurrence: US)
  Receive Date: 20140206
  Receipt Date: 20140206
  Transmission Date: 20141002
  Serious: No
  Sender: FDA-Public Use
  Company Number: US-ALLERGAN-1312551US

PATIENT
  Age: 52 Year
  Sex: Female

DRUGS (7)
  1. BOTOX COSMETIC [Suspect]
     Indication: SKIN WRINKLING
     Dosage: 36 UNITS, SINGLE
     Route: 030
     Dates: start: 20130814, end: 20130814
  2. BOTOX COSMETIC [Suspect]
     Indication: SKIN WRINKLING
  3. BOTOX COSMETIC [Suspect]
     Indication: SKIN WRINKLING
  4. JUVEDERM ULTRA PLUS [Suspect]
     Indication: DERMAL FILLER INJECTION
     Dosage: UNK
     Dates: start: 20130814, end: 20130814
  5. JUVEDERM ULTRA PLUS [Suspect]
     Indication: DERMAL FILLER INJECTION
  6. PRILOSEC                           /00661201/ [Concomitant]
     Indication: GASTROOESOPHAGEAL REFLUX DISEASE
     Dosage: UNK
  7. SIMVASTATIN [Concomitant]
     Indication: BLOOD CHOLESTEROL INCREASED
     Dosage: UNK

REACTIONS (3)
  - Gingival erythema [Recovered/Resolved]
  - Gingival erythema [Recovered/Resolved]
  - Gingival swelling [Recovered/Resolved]
